FAERS Safety Report 16534135 (Version 1)
Quarter: 2019Q3

REPORT INFORMATION
  Report Type: Report from Study
  Country: None (occurrence: US)
  Receive Date: 20190705
  Receipt Date: 20190705
  Transmission Date: 20191004
  Serious: Yes (Other)
  Sender: FDA-Public Use
  Company Number: US-ABBVIE-19K-163-2813172-00

PATIENT
  Age: 60 Year
  Sex: Male
  Weight: 77.18 kg

DRUGS (2)
  1. IBUPROFEN. [Concomitant]
     Active Substance: IBUPROFEN
     Indication: PAIN
  2. HUMIRA [Suspect]
     Active Substance: ADALIMUMAB
     Indication: PSORIATIC ARTHROPATHY
     Route: 058
     Dates: start: 20171208, end: 201904

REACTIONS (1)
  - Osteoarthritis [Recovering/Resolving]

NARRATIVE: CASE EVENT DATE: 2018
